FAERS Safety Report 9669987 (Version 1)
Quarter: 2013Q4

REPORT INFORMATION
  Report Type: Other
  Country: US (occurrence: US)
  Receive Date: 20131105
  Receipt Date: 20131105
  Transmission Date: 20140711
  Serious: Yes (Hospitalization, Other)
  Sender: FDA-Public Use
  Company Number: US-BRISTOL-MYERS SQUIBB COMPANY-19707355

PATIENT
  Age: 54 Year
  Sex: Female

DRUGS (5)
  1. METFORMIN HCL [Suspect]
  2. LISINOPRIL [Suspect]
  3. LITHIUM [Suspect]
  4. SIMVASTATIN [Suspect]
  5. ASPIRIN [Suspect]

REACTIONS (9)
  - Mental status changes [Recovered/Resolved]
  - Renal failure [Recovered/Resolved]
  - Blood pressure increased [Unknown]
  - Hyperreflexia [Unknown]
  - Clonus [Unknown]
  - Tremor [Unknown]
  - Dry skin [Unknown]
  - Mucosal dryness [Unknown]
  - Diet refusal [Unknown]
